FAERS Safety Report 12654990 (Version 4)
Quarter: 2016Q4

REPORT INFORMATION
  Report Type: Spontaneous
  Country: US (occurrence: US)
  Receive Date: 20160816
  Receipt Date: 20161123
  Transmission Date: 20170207
  Serious: Yes (Other)
  Sender: FDA-Public Use
  Company Number: US-GLAXOSMITHKLINE-US2016GSK116488

PATIENT
  Sex: Female
  Weight: 69.84 kg

DRUGS (1)
  1. BACTROBAN [Suspect]
     Active Substance: MUPIROCIN\MUPIROCIN CALCIUM
     Indication: PRODUCT USED FOR UNKNOWN INDICATION
     Dosage: UNK UNK, U
     Route: 061
     Dates: start: 20150730, end: 20150802

REACTIONS (6)
  - Anaphylactic reaction [Recovered/Resolved]
  - Dermatitis contact [Recovered/Resolved]
  - Rash [Recovered/Resolved]
  - Swelling face [Recovered/Resolved]
  - Pharyngeal oedema [Recovered/Resolved]
  - Laryngeal oedema [Recovered/Resolved]

NARRATIVE: CASE EVENT DATE: 2015
